FAERS Safety Report 10576388 (Version 3)
Quarter: 2015Q3

REPORT INFORMATION
  Report Type: Spontaneous
  Country: US (occurrence: US)
  Receive Date: 20141111
  Receipt Date: 20150722
  Transmission Date: 20151125
  Serious: Yes (Life-Threatening, Hospitalization)
  Sender: FDA-Public Use
  Company Number: US-BAYER-2014-166217

PATIENT
  Age: 23 Year
  Sex: Female
  Weight: 50.79 kg

DRUGS (3)
  1. IBUPROFEN. [Concomitant]
     Active Substance: IBUPROFEN
     Indication: PAIN
     Dosage: 800 MG, PRN
  2. ORTHO TRI CYCLEN [Concomitant]
     Active Substance: ETHINYL ESTRADIOL\NORGESTIMATE
  3. MIRENA [Suspect]
     Active Substance: LEVONORGESTREL
     Indication: CONTRACEPTION
     Dosage: 20 MCG/24HR, CONT
     Route: 015
     Dates: start: 200804, end: 20120329

REACTIONS (6)
  - Uterine perforation [None]
  - General physical health deterioration [None]
  - Infection [None]
  - Injury [None]
  - Device issue [None]
  - Abdominal pain [None]

NARRATIVE: CASE EVENT DATE: 200806
